FAERS Safety Report 5876041-4 (Version None)
Quarter: 2008Q3

REPORT INFORMATION
  Report Type: 
  Country: None (occurrence: None)
  Receive Date: 20080905
  Receipt Date: 20080822
  Transmission Date: 20090109
  Serious: Yes (Hospitalization)
  Sender: FDA-Public Use
  Company Number: B0535167A

PATIENT
  Age: 42 Year
  Sex: Male

DRUGS (5)
  1. BUSULPHAN (FORMULATION UNKNOWN) (GENERIC) (BUSULFAN) [Suspect]
     Indication: BONE MARROW TRANSPLANT
     Dosage: 4 MG/KG / PER DAY / ORAL
     Route: 048
  2. CYCLOPHOSPHAMIDE [Suspect]
     Indication: BONE MARROW TRANSPLANT
     Dosage: 60 MG/KG / PER DAY /
  3. CYCLOSPORINE [Suspect]
     Indication: PROPHYLAXIS AGAINST TRANSPLANT REJECTION
  4. METHOTREXATE [Suspect]
     Indication: PROPHYLAXIS AGAINST TRANSPLANT REJECTION
  5. ISONIAZID [Suspect]
     Indication: TUBERCULIN TEST POSITIVE
     Dosage: ORAL
     Route: 048

REACTIONS (13)
  - ACUTE GRAFT VERSUS HOST DISEASE IN INTESTINE [None]
  - ACUTE GRAFT VERSUS HOST DISEASE IN LIVER [None]
  - CYTOMEGALOVIRUS ANTIGEN POSITIVE [None]
  - GASTRODUODENITIS [None]
  - HEPATIC ENZYME INCREASED [None]
  - HEPATOTOXICITY [None]
  - ILEAL STENOSIS [None]
  - INTESTINAL OBSTRUCTION [None]
  - MESENTERIC ARTERIOSCLEROSIS [None]
  - PHLEBITIS [None]
  - TUBERCULIN TEST POSITIVE [None]
  - VENOOCCLUSIVE DISEASE [None]
  - WEIGHT DECREASED [None]
